FAERS Safety Report 7542541-4 (Version None)
Quarter: 2011Q2

REPORT INFORMATION
  Report Type: 
  Country: None (occurrence: None)
  Receive Date: 20110613
  Receipt Date: 20110606
  Transmission Date: 20111010
  Serious: Yes (Hospitalization, Other)
  Sender: FDA-Public Use
  Company Number: US-ROCHE-727464

PATIENT
  Sex: Female
  Weight: 63.5 kg

DRUGS (3)
  1. DOXYCYCLINE [Concomitant]
  2. ACCUTANE [Suspect]
     Route: 065
     Dates: start: 19940322
  3. ACCUTANE [Suspect]
     Route: 065
     Dates: start: 19950901, end: 19960201

REACTIONS (8)
  - CROHN'S DISEASE [None]
  - SMALL INTESTINAL OBSTRUCTION [None]
  - SMALL INTESTINAL PERFORATION [None]
  - COLITIS ULCERATIVE [None]
  - HAEMORRHOIDS [None]
  - GASTROINTESTINAL INJURY [None]
  - INFLAMMATORY BOWEL DISEASE [None]
  - NEPHROLITHIASIS [None]
